FAERS Safety Report 8846576 (Version 1)
Quarter: 2012Q4

REPORT INFORMATION
  Report Type: 
  Country: US (occurrence: US)
  Receive Date: 20121017
  Receipt Date: 20121017
  Transmission Date: 20130627
  Serious: Yes (Other)
  Sender: FDA-Public Use
  Company Number: US-BAYER-2012-106322

PATIENT
  Age: 65 Year
  Sex: Male

DRUGS (1)
  1. NIMOTOP [Suspect]
     Dosage: UNK

REACTIONS (3)
  - Hypotension [None]
  - Renal failure [None]
  - Medication error [None]
